FAERS Safety Report 11795789 (Version 2)
Quarter: 2015Q4

REPORT INFORMATION
  Report Type: Report from Study
  Country: BR (occurrence: BR)
  Receive Date: 20151202
  Receipt Date: 20151206
  Transmission Date: 20160305
  Serious: Yes (Other)
  Sender: FDA-Public Use
  Company Number: PHHY2015BR092930

PATIENT
  Age: 57 Year
  Sex: Male
  Weight: 71 kg

DRUGS (2)
  1. EXJADE [Suspect]
     Active Substance: DEFERASIROX
     Indication: SICKLE CELL ANAEMIA
     Dosage: 2 DF, UNK (2 TABLETS OF 500 MG)
     Route: 065
     Dates: start: 20140827
  2. EXJADE [Suspect]
     Active Substance: DEFERASIROX
     Indication: THALASSAEMIA BETA

REACTIONS (10)
  - Hepatitis [Recovered/Resolved]
  - Laziness [Unknown]
  - Apathy [Unknown]
  - Oropharyngeal pain [Recovering/Resolving]
  - Eructation [Recovered/Resolved]
  - Drug-induced liver injury [Recovered/Resolved]
  - Malaise [Unknown]
  - Dysgeusia [Recovering/Resolving]
  - Abdominal distension [Recovered/Resolved]
  - Throat irritation [Recovering/Resolving]

NARRATIVE: CASE EVENT DATE: 20150928
